FAERS Safety Report 4647493-2 (Version None)
Quarter: 2005Q2

REPORT INFORMATION
  Report Type: 
  Country: None (occurrence: None)
  Receive Date: 20050428
  Receipt Date: 20050422
  Transmission Date: 20051028
  Serious: Yes (Death)
  Sender: FDA-Public Use
  Company Number: ES-JNJFOC-20050405473

PATIENT
  Age: 63 Year
  Sex: Female

DRUGS (2)
  1. DURAGESIC-100 [Suspect]
     Route: 062
  2. DURAGESIC-100 [Suspect]
     Indication: DYSPNOEA
     Route: 062

REACTIONS (3)
  - DYSPNOEA EXACERBATED [None]
  - PULMONARY THROMBOSIS [None]
  - SUDDEN DEATH [None]
